FAERS Safety Report 12134435 (Version 1)
Quarter: 2016Q1

REPORT INFORMATION
  Report Type: Spontaneous
  Country: US (occurrence: US)
  Receive Date: 20160301
  Receipt Date: 20160301
  Transmission Date: 20160526
  Serious: Yes (Other)
  Sender: FDA-Public Use
  Company Number: CHPA2016US002568

PATIENT
  Sex: Female

DRUGS (1)
  1. KERI SHEA BUTTER [Suspect]
     Active Substance: SHEA BUTTER
     Indication: PRODUCT USED FOR UNKNOWN INDICATION
     Dosage: UNK
     Route: 061

REACTIONS (1)
  - Skin cancer [Unknown]
